FAERS Safety Report 8813567 (Version 1)
Quarter: 2012Q4

REPORT INFORMATION
  Report Type: 
  Country: US (occurrence: US)
  Receive Date: 20120927
  Receipt Date: 20120927
  Transmission Date: 20130627
  Serious: No
  Sender: FDA-Public Use
  Company Number: US-AMGEN-USASP2012038584

PATIENT
  Age: 70 Year
  Sex: Female
  Weight: 60.32 kg

DRUGS (8)
  1. PROLIA [Suspect]
     Indication: OSTEOPOROSIS POSTMENOPAUSAL
     Dosage: 60 mg, UNK
     Route: 058
     Dates: start: 20120323
  2. PROLIA [Suspect]
     Dosage: 60 mg, q6mo
     Route: 058
     Dates: start: 201109
  3. PRILOSEC                           /00661201/ [Concomitant]
     Dosage: 2 mg, qd
     Route: 048
  4. RESTASIS [Concomitant]
     Dosage: UNK
  5. ISOTONIX COENZYME Q10 [Concomitant]
     Dosage: UNK
  6. FISH OIL [Concomitant]
     Dosage: UNK
  7. MULTIVITAMIN                       /00831701/ [Concomitant]
     Dosage: UNK
  8. LIVALO [Concomitant]
     Dosage: UNK
     Dates: end: 201205

REACTIONS (5)
  - Musculoskeletal chest pain [Not Recovered/Not Resolved]
  - Back pain [Not Recovered/Not Resolved]
  - Bone pain [Not Recovered/Not Resolved]
  - Chest pain [Unknown]
  - Pain in extremity [Not Recovered/Not Resolved]
